FAERS Safety Report 9484119 (Version 1)
Quarter: 2013Q3

REPORT INFORMATION
  Report Type: Spontaneous
  Country: US (occurrence: US)
  Receive Date: 20130828
  Receipt Date: 20130828
  Transmission Date: 20140515
  Serious: Yes (Hospitalization)
  Sender: FDA-Public Use
  Company Number: US-AMGEN-KDL372118

PATIENT
  Age: 45 Year
  Sex: Female

DRUGS (1)
  1. ENBREL [Suspect]
     Indication: RHEUMATOID ARTHRITIS
     Dosage: 50 MG, QWK
     Route: 058
     Dates: start: 20011220

REACTIONS (9)
  - Sepsis [Unknown]
  - Anal abscess [Unknown]
  - Pain in extremity [Unknown]
  - Rheumatoid arthritis [Not Recovered/Not Resolved]
  - Limb injury [Unknown]
  - Decreased appetite [Unknown]
  - Asthenia [Unknown]
  - Vomiting [Unknown]
  - Diarrhoea [Unknown]
